FAERS Safety Report 5481280-0 (Version None)
Quarter: 2007Q4

REPORT INFORMATION
  Report Type: 
  Country: None (occurrence: None)
  Receive Date: 20071005
  Receipt Date: 20071005
  Transmission Date: 20080405
  Serious: Yes (Other)
  Sender: FDA-Public Use
  Company Number: None

PATIENT
  Age: 7 Year
  Sex: Male
  Weight: 29.4838 kg

DRUGS (2)
  1. SEROQUEL [Suspect]
     Indication: AFFECTIVE DISORDER
     Dosage: 100MG 3 Q D PO
     Route: 048
     Dates: start: 20051004, end: 20070713
  2. SEROQUEL [Suspect]
     Indication: AGGRESSION
     Dosage: 100MG 3 Q D PO
     Route: 048
     Dates: start: 20051004, end: 20070713

REACTIONS (6)
  - CONDITION AGGRAVATED [None]
  - DISTURBANCE IN ATTENTION [None]
  - GRIMACING [None]
  - IMPULSE-CONTROL DISORDER [None]
  - MOVEMENT DISORDER [None]
  - PSYCHOMOTOR HYPERACTIVITY [None]
